FAERS Safety Report 16787332 (Version 1)
Quarter: 2019Q3

REPORT INFORMATION
  Report Type: Spontaneous
  Country: FR (occurrence: FR)
  Receive Date: 20190909
  Receipt Date: 20190909
  Transmission Date: 20191005
  Serious: Yes (Hospitalization)
  Sender: FDA-Public Use
  Company Number: PHHY2019FR204605

PATIENT
  Age: 21 Year
  Sex: Female

DRUGS (4)
  1. PARACETAMOL [Suspect]
     Active Substance: ACETAMINOPHEN
     Indication: SUICIDE ATTEMPT
     Dosage: UNK (2 A 3 CPS)
     Route: 048
  2. HAVLANE [Suspect]
     Active Substance: LOPRAZOLAM
     Indication: SUICIDE ATTEMPT
     Dosage: UNK (0.5 BOITE DE CONTENANCE INCONNUE)
     Route: 048
  3. FERVEX [ASCORBIC ACID;PARACETAMOL;PHENIRAMINE MALEATE] [Suspect]
     Active Substance: ACETAMINOPHEN\ASCORBIC ACID\PHENIRAMINE MALEATE
     Indication: SUICIDE ATTEMPT
     Dosage: 1 DF, UNK
     Route: 048
  4. CODEINE [Suspect]
     Active Substance: CODEINE
     Indication: SUICIDE ATTEMPT
     Dosage: UNK (2 A 3 CPS)
     Route: 048

REACTIONS (1)
  - Somnolence [Recovered/Resolved]

NARRATIVE: CASE EVENT DATE: 20181226
